FAERS Safety Report 12864097 (Version 5)
Quarter: 2016Q4

REPORT INFORMATION
  Report Type: Spontaneous
  Country: IT (occurrence: IT)
  Receive Date: 20161019
  Receipt Date: 20161115
  Transmission Date: 20170207
  Serious: Yes (Other)
  Sender: FDA-Public Use
  Company Number: IT-ROCHE-1842394

PATIENT
  Age: 56 Year
  Sex: Female
  Weight: 55 kg

DRUGS (10)
  1. MABTHERA [Suspect]
     Active Substance: RITUXIMAB
     Indication: GENE MUTATION
     Dosage: 3 SUCCESSIVE CYCLES
     Route: 042
     Dates: end: 20151127
  2. BACTRIM [Concomitant]
     Active Substance: SULFAMETHOXAZOLE\TRIMETHOPRIM
     Indication: PROPHYLAXIS
     Dosage: 160 MG PLUS 800 MG SOLUBLE TABLETS 16 TABLET
     Route: 048
     Dates: start: 20151112
  3. MABTHERA [Suspect]
     Active Substance: RITUXIMAB
     Route: 042
     Dates: start: 20151211
  4. ACICLOVIR [Concomitant]
     Active Substance: ACYCLOVIR
     Route: 048
     Dates: start: 20151112
  5. ZYDELIG [Suspect]
     Active Substance: IDELALISIB
     Indication: GENE MUTATION
     Dosage: 150 MG FILM COATED TABLET ORAL USE BOTTLE
     Route: 048
     Dates: start: 20160111
  6. ZYDELIG [Suspect]
     Active Substance: IDELALISIB
     Indication: CHRONIC LYMPHOCYTIC LEUKAEMIA
     Dosage: 150 MG FILM COATED TABLET ORAL USE BOTTLE
     Route: 048
     Dates: start: 20151112, end: 20151224
  7. ZYDELIG [Suspect]
     Active Substance: IDELALISIB
     Indication: GENE MUTATION
     Dosage: 150 MG FILM COATED TABLET ORAL USE BOTTLE
     Route: 048
     Dates: start: 201602
  8. MABTHERA [Suspect]
     Active Substance: RITUXIMAB
     Indication: CHRONIC LYMPHOCYTIC LEUKAEMIA
     Dosage: 1ST CYCLE
     Route: 042
     Dates: start: 20151112
  9. MABTHERA [Suspect]
     Active Substance: RITUXIMAB
     Indication: GENE MUTATION
     Dosage: 3 SUCCESSIVE CYCLES?ON 11/DEC/2015 RECEIVED MOST RECENT DOSE
     Route: 042
  10. ACICLOVIR [Concomitant]
     Active Substance: ACYCLOVIR
     Indication: PROPHYLAXIS
     Route: 048
     Dates: start: 20151211

REACTIONS (1)
  - Transaminases increased [Recovered/Resolved]

NARRATIVE: CASE EVENT DATE: 20151224
